FAERS Safety Report 8082079-1 (Version None)
Quarter: 2012Q1

REPORT INFORMATION
  Report Type: 
  Country: None (occurrence: None)
  Receive Date: 20120127
  Receipt Date: 20110227
  Transmission Date: 20120608
  Serious: No
  Sender: FDA-Public Use
  Company Number: US-ABBOTT-11P-163-0707963-00

PATIENT
  Age: 23 Year
  Sex: Male

DRUGS (3)
  1. PREDNISONE TAB [Concomitant]
     Indication: PRODUCT USED FOR UNKNOWN INDICATION
  2. HUMIRA [Suspect]
     Indication: COLITIS
     Dates: start: 20100501
  3. HUMIRA [Suspect]
     Indication: ARTHRITIS

REACTIONS (9)
  - MALAISE [None]
  - DISTURBANCE IN SEXUAL AROUSAL [None]
  - NASOPHARYNGITIS [None]
  - DECREASED ACTIVITY [None]
  - SEXUAL DYSFUNCTION [None]
  - FATIGUE [None]
  - INFLUENZA [None]
  - ASTHENIA [None]
  - COUGH [None]
